FAERS Safety Report 8385421 (Version 5)
Quarter: 2015Q1

REPORT INFORMATION
  Report Type: Report from Study
  Country: US (occurrence: US)
  Receive Date: 20120202
  Receipt Date: 20150303
  Transmission Date: 20150721
  Serious: Yes (Death)
  Sender: FDA-Public Use
  Company Number: US-ROCHE-1035775

PATIENT
  Age: 62 Year
  Sex: Male
  Weight: 85.35 kg

DRUGS (10)
  1. TAGAMET [Concomitant]
     Active Substance: CIMETIDINE
     Route: 042
  2. TAXOL [Concomitant]
     Active Substance: PACLITAXEL
     Route: 042
  3. GEMZAR [Concomitant]
     Active Substance: GEMCITABINE HYDROCHLORIDE
     Route: 042
  4. CARBOPLATIN. [Concomitant]
     Active Substance: CARBOPLATIN
     Route: 042
  5. ALOXI [Concomitant]
     Active Substance: PALONOSETRON HYDROCHLORIDE
     Route: 042
  6. NYSTATIN. [Concomitant]
     Active Substance: NYSTATIN
  7. AVASTIN [Suspect]
     Active Substance: BEVACIZUMAB
     Indication: LUNG NEOPLASM MALIGNANT
     Route: 042
     Dates: start: 20070731, end: 20070821
  8. BENADRYL [Concomitant]
     Active Substance: DIPHENHYDRAMINE HYDROCHLORIDE
     Route: 042
  9. NEULASTA [Suspect]
     Active Substance: PEGFILGRASTIM
     Indication: PRODUCT USED FOR UNKNOWN INDICATION
     Route: 058
  10. HEPARIN [Concomitant]
     Active Substance: HEPARIN SODIUM
     Route: 042

REACTIONS (10)
  - Pain [Unknown]
  - Diarrhoea [Unknown]
  - Respiratory failure [Fatal]
  - Sepsis [Fatal]
  - Oral pain [Unknown]
  - Pyrexia [Unknown]
  - Mucosal inflammation [Unknown]
  - Chills [Unknown]
  - Bone pain [Unknown]
  - Vomiting [Unknown]

NARRATIVE: CASE EVENT DATE: 20080404
